FAERS Safety Report 9975661 (Version 1)
Quarter: 2014Q1

REPORT INFORMATION
  Report Type: Report from Study
  Country: US (occurrence: US)
  Receive Date: 20140306
  Receipt Date: 20140306
  Transmission Date: 20141002
  Serious: No
  Sender: FDA-Public Use
  Company Number: US-ABBVIE-13P-163-1155967-00

PATIENT
  Sex: Female

DRUGS (5)
  1. HUMIRA [Suspect]
     Indication: COLITIS ULCERATIVE
     Dosage: 1ST LOADING DOSE
     Dates: start: 201309, end: 201309
  2. HUMIRA [Suspect]
     Dosage: 2ND LOADING DOSE
  3. SYNTHROID [Concomitant]
     Indication: HYPOTHYROIDISM
  4. SYNTHROID [Concomitant]
     Indication: ASTHMA
  5. EFFEXOR [Concomitant]
     Indication: ANXIETY

REACTIONS (2)
  - Dysgeusia [Not Recovered/Not Resolved]
  - Weight decreased [Not Recovered/Not Resolved]
